FAERS Safety Report 7458027-1 (Version None)
Quarter: 2011Q2

REPORT INFORMATION
  Report Type: 
  Country: None (occurrence: None)
  Receive Date: 20110503
  Receipt Date: 20110503
  Transmission Date: 20111010
  Serious: No
  Sender: FDA-Public Use
  Company Number: None

PATIENT
  Sex: Female
  Weight: 72.3 kg

DRUGS (2)
  1. OXALIPLATIN [Suspect]
     Indication: PSEUDOMYXOMA PERITONEI
     Dosage: 180 MG ONCE OVER 2 HOURS IV
     Route: 042
     Dates: start: 20110330, end: 20110427
  2. OXALIPLATIN [Suspect]
     Indication: COLON CANCER
     Dosage: 180 MG ONCE OVER 2 HOURS IV
     Route: 042
     Dates: start: 20110330, end: 20110427

REACTIONS (5)
  - EYE PAIN [None]
  - CHOKING SENSATION [None]
  - PHARYNGEAL OEDEMA [None]
  - VISUAL FIELD DEFECT [None]
  - LOSS OF CONSCIOUSNESS [None]
